FAERS Safety Report 16962861 (Version 1)
Quarter: 2019Q4

REPORT INFORMATION
  Report Type: Spontaneous
  Country: US (occurrence: US)
  Receive Date: 20190906
  Receipt Date: 20190906
  Transmission Date: 20200122
  Serious: Yes (Hospitalization)
  Sender: FDA-Public Use
  Company Number: None

PATIENT
  Age: 49 Year
  Sex: Male
  Weight: 66 kg

DRUGS (5)
  1. CISPLATIN. [Suspect]
     Active Substance: CISPLATIN
     Dates: end: 20190825
  2. G-CSF (FILGRASTIM, AMGEN) [Suspect]
     Active Substance: FILGRASTIM
     Dates: end: 20190828
  3. NEULASTA [Suspect]
     Active Substance: PEGFILGRASTIM
     Dates: end: 20190826
  4. IFOSFAMIDE. [Suspect]
     Active Substance: IFOSFAMIDE
     Dates: end: 20190825
  5. TAXOL [Suspect]
     Active Substance: PACLITAXEL
     Dates: end: 20190821

REACTIONS (1)
  - Renal failure [None]

NARRATIVE: CASE EVENT DATE: 20190827
